FAERS Safety Report 7558813-3 (Version None)
Quarter: 2011Q2

REPORT INFORMATION
  Report Type: 
  Country: None (occurrence: None)
  Receive Date: 20110613
  Receipt Date: 20110527
  Transmission Date: 20111010
  Serious: Yes (Hospitalization)
  Sender: FDA-Public Use
  Company Number: 2011NA000044

PATIENT
  Age: 16 Year
  Sex: Male

DRUGS (1)
  1. DICLOFENAC SODIUM [Suspect]
     Indication: PYREXIA
     Dosage: 50 MG;

REACTIONS (5)
  - SERUM FERRITIN INCREASED [None]
  - BACK PAIN [None]
  - LEUCINE AMINOPEPTIDASE INCREASED [None]
  - HAEMOLYSIS [None]
  - INTERLEUKIN LEVEL INCREASED [None]
